FAERS Safety Report 10927025 (Version 1)
Quarter: 2015Q1

REPORT INFORMATION
  Report Type: Spontaneous
  Country: US (occurrence: US)
  Receive Date: 20150318
  Receipt Date: 20150318
  Transmission Date: 20150721
  Serious: No
  Sender: FDA-Public Use
  Company Number: US-GLAXOSMITHKLINE-US2015030476

PATIENT
  Sex: Male

DRUGS (6)
  1. LISINOPRIL-HCTZ [Concomitant]
     Active Substance: HYDROCHLOROTHIAZIDE\LISINOPRIL
  2. ADVAIR DISKUS [Suspect]
     Active Substance: FLUTICASONE PROPIONATE\SALMETEROL XINAFOATE
     Indication: CHRONIC OBSTRUCTIVE PULMONARY DISEASE
     Dosage: 1 PUFF(S), BID
     Route: 055
     Dates: start: 201311, end: 201411
  3. SIMVASTATIN. [Concomitant]
     Active Substance: SIMVASTATIN
  4. ANORO ELLIPTA [Suspect]
     Active Substance: UMECLIDINIUM BROMIDE\VILANTEROL TRIFENATATE
     Indication: CHRONIC OBSTRUCTIVE PULMONARY DISEASE
     Dosage: 1 PUFF(S), QD
     Dates: start: 20141203
  5. LEVOTHYROXINE [Concomitant]
     Active Substance: LEVOTHYROXINE
  6. LATANOPROST. [Concomitant]
     Active Substance: LATANOPROST

REACTIONS (3)
  - Dental caries [Unknown]
  - Increased upper airway secretion [Unknown]
  - Drug ineffective [Unknown]

NARRATIVE: CASE EVENT DATE: 20131101
